FAERS Safety Report 18767148 (Version 2)
Quarter: 2022Q2

REPORT INFORMATION
  Report Type: Other
  Country: CZ (occurrence: CZ)
  Receive Date: 20210121
  Receipt Date: 20220509
  Transmission Date: 20220721
  Serious: Yes (Death)
  Sender: FDA-Public Use
  Company Number: CZ-CELLTRION HEALTHCARE HUNGARY KFT-2021CZ000148

PATIENT

DRUGS (15)
  1. RITUXIMAB [Suspect]
     Active Substance: RITUXIMAB
     Indication: Chronic lymphocytic leukaemia
     Dosage: UNK, 5 CYCLES AS FCR (FLUDARABINE, CYCLOPHOSPHAMIDE, RITUXIMAB)
     Route: 041
     Dates: start: 201901
  2. RITUXIMAB [Suspect]
     Active Substance: RITUXIMAB
     Dosage: UNK, R-CHOP
     Route: 041
  3. CYCLOPHOSPHAMIDE\DOXORUBICIN\PREDNISONE\VINCRISTINE [Suspect]
     Active Substance: CYCLOPHOSPHAMIDE\DOXORUBICIN\PREDNISONE\VINCRISTINE
     Indication: Chronic lymphocytic leukaemia
     Dosage: UNK, CYCLIC (R-CHOP)
     Route: 065
  4. FLUDARABINE [Suspect]
     Active Substance: FLUDARABINE PHOSPHATE
     Indication: Chronic lymphocytic leukaemia
     Dosage: UNK, 5 CYCLES AS FCR (FLUDARABINE, CYCLOPHOSPHAMIDE, RITUXIMAB)
     Route: 065
     Dates: start: 201901
  5. FLUDARABINE [Suspect]
     Active Substance: FLUDARABINE PHOSPHATE
     Indication: Premedication
     Dosage: UNK, PREPARATORY REGIMEN PRIOR TO ALLO-HCT
     Route: 065
  6. CYCLOPHOSPHAMIDE [Suspect]
     Active Substance: CYCLOPHOSPHAMIDE
     Indication: Chronic lymphocytic leukaemia
     Dosage: UNK, 5 CYCLES AS FCR (FLUDARABINE, CYCLOPHOSPHAMIDE, RITUXIMAB)
     Route: 065
     Dates: start: 201901
  7. BUSULFAN [Concomitant]
     Active Substance: BUSULFAN
     Indication: Premedication
     Dosage: UNK, PREPARATORY REGIMEN PRIOR TO ALLO-HCT
  8. TACROLIMUS [Concomitant]
     Active Substance: TACROLIMUS
     Indication: Immunosuppression
  9. IBRUTINIB [Concomitant]
     Active Substance: IBRUTINIB
     Dosage: 420 MG, DAILY
     Dates: start: 201909
  10. GRANULOCYTE COLONY-STIMULATING FACTOR NOS [Concomitant]
     Active Substance: GRANULOCYTE COLONY-STIMULATING FACTOR NOS
     Indication: Prophylaxis
     Dosage: UNK
     Dates: start: 201901
  11. GRANULOCYTE COLONY-STIMULATING FACTOR NOS [Concomitant]
     Active Substance: GRANULOCYTE COLONY-STIMULATING FACTOR NOS
     Indication: Febrile neutropenia
  12. VENETOCLAX [Concomitant]
     Active Substance: VENETOCLAX
     Dosage: UNK, RESCUE TREATMENT
  13. MYCOPHENOLATE MOFETIL [Concomitant]
     Active Substance: MYCOPHENOLATE MOFETIL
     Indication: Immunosuppression
  14. VALACYCLOVIR HYDROCHLORIDE [Concomitant]
     Active Substance: VALACYCLOVIR HYDROCHLORIDE
     Indication: Infection prophylaxis
     Dosage: UNK
     Dates: start: 201901
  15. SULFAMETHOXAZOLE\TRIMETHOPRIM [Concomitant]
     Active Substance: SULFAMETHOXAZOLE\TRIMETHOPRIM
     Indication: Infection prophylaxis
     Dosage: UNK
     Dates: start: 201901

REACTIONS (9)
  - Death [Fatal]
  - Febrile neutropenia [Fatal]
  - Richter^s syndrome [Fatal]
  - Hypercalcaemia [Fatal]
  - Chronic lymphocytic leukaemia [Fatal]
  - White blood cell count decreased [Fatal]
  - Neutropenia [Fatal]
  - Tissue infiltration [Fatal]
  - Allogenic stem cell transplantation [Fatal]

NARRATIVE: CASE EVENT DATE: 20200201
